FAERS Safety Report 4370984-9 (Version None)
Quarter: 2004Q2

REPORT INFORMATION
  Report Type: 
  Country: None (occurrence: None)
  Receive Date: 20040601
  Receipt Date: 20040525
  Transmission Date: 20050107
  Serious: Yes (Hospitalization)
  Sender: FDA-Public Use
  Company Number: 2004IC000157

PATIENT
  Age: 55 Year
  Sex: Male

DRUGS (2)
  1. FLUOROURACIL [Suspect]
     Indication: RECTAL CANCER
     Dosage: 500 MG INTRAVENOUS
     Route: 042
     Dates: start: 20030711, end: 20030715
  2. LEUCOVORIN CALCIUM [Suspect]
     Indication: RECTAL CANCER
     Dosage: 50 MG INTRAVENOUS
     Route: 042
     Dates: start: 20030711, end: 20030715

REACTIONS (8)
  - DYSURIA [None]
  - GAIT DISTURBANCE [None]
  - HYPERREFLEXIA [None]
  - HYPOAESTHESIA [None]
  - LEUKOENCEPHALOMYELITIS [None]
  - MUSCULAR WEAKNESS [None]
  - SENSORY DISTURBANCE [None]
  - URINARY RETENTION [None]
